FAERS Safety Report 8368480-7 (Version None)
Quarter: 2012Q2

REPORT INFORMATION
  Report Type: 
  Country: None (occurrence: None)
  Receive Date: 20120518
  Receipt Date: 20120507
  Transmission Date: 20120825
  Serious: Yes (Other)
  Sender: FDA-Public Use
  Company Number: NL-AMGEN-NLDSP2012022014

PATIENT
  Age: 65 Year
  Sex: Female

DRUGS (7)
  1. FOLIC ACID [Concomitant]
     Dosage: 5 MG, 3 X WEEK
     Dates: start: 20110101
  2. METHOTREXATE SODIUM [Concomitant]
     Indication: RHEUMATOID ARTHRITIS
     Dosage: 7.5 MG, QWK
     Dates: start: 20110101
  3. VERAPAMIL [Concomitant]
     Indication: MIGRAINE
     Dosage: 180 UNK, 2X/DAY
     Dates: start: 20100101
  4. ENBREL [Suspect]
     Indication: RHEUMATOID ARTHRITIS
     Dosage: 50 MG, WEEKLY
  5. IRBESARTAN [Concomitant]
     Indication: HYPERTENSION
     Dosage: UNK
     Dates: start: 20090101
  6. TOPAMAX [Concomitant]
     Indication: CLUSTER HEADACHE
     Dosage: 40 UNK, 2X/DAY
     Dates: start: 20110101
  7. OMEPRAZOLE [Concomitant]
     Indication: PROPHYLAXIS
     Dosage: UNK

REACTIONS (3)
  - LOSS OF CONSCIOUSNESS [None]
  - CYSTITIS [None]
  - FALL [None]
